FAERS Safety Report 14280542 (Version 3)
Quarter: 2019Q2

REPORT INFORMATION
  Report Type: Spontaneous
  Country: US (occurrence: US)
  Receive Date: 20171212
  Receipt Date: 20190424
  Transmission Date: 20190711
  Serious: No
  Sender: FDA-Public Use
  Company Number: US-BIOGEN-2017BI00472942

PATIENT
  Sex: Female

DRUGS (8)
  1. TECFIDERA [Suspect]
     Active Substance: DIMETHYL FUMARATE
     Dosage: FOURTH WEEK?MAINTENANCE DOSE
     Route: 050
     Dates: start: 20170929
  2. TECFIDERA [Suspect]
     Active Substance: DIMETHYL FUMARATE
     Route: 065
  3. TECFIDERA [Suspect]
     Active Substance: DIMETHYL FUMARATE
     Dosage: PM?SECOND AND THIRD WEEK
     Route: 050
     Dates: start: 20170915, end: 20170928
  4. TECFIDERA [Suspect]
     Active Substance: DIMETHYL FUMARATE
     Dosage: FOR 7 DAYS
     Route: 050
     Dates: start: 20170905, end: 20170911
  5. TECFIDERA [Suspect]
     Active Substance: DIMETHYL FUMARATE
     Dosage: MAINTENANCE DOSE
     Route: 050
     Dates: start: 20170912
  6. TECFIDERA [Suspect]
     Active Substance: DIMETHYL FUMARATE
     Route: 065
  7. TECFIDERA [Suspect]
     Active Substance: DIMETHYL FUMARATE
     Indication: MULTIPLE SCLEROSIS
     Dosage: INITIAL DOSE
     Route: 050
  8. TECFIDERA [Suspect]
     Active Substance: DIMETHYL FUMARATE
     Dosage: AM?SECOND AND THIRD WEEK
     Route: 050
     Dates: start: 20170915, end: 20170928

REACTIONS (7)
  - Prescribed underdose [Unknown]
  - Flushing [Unknown]
  - Pruritus [Unknown]
  - Hypoaesthesia [Not Recovered/Not Resolved]
  - Drug ineffective [Unknown]
  - Acne [Unknown]
  - Alopecia [Not Recovered/Not Resolved]
